FAERS Safety Report 4674167-4 (Version None)
Quarter: 2005Q2

REPORT INFORMATION
  Report Type: 
  Country: None (occurrence: None)
  Receive Date: 20050524
  Receipt Date: 20050511
  Transmission Date: 20051028
  Serious: Yes (Life-Threatening)
  Sender: FDA-Public Use
  Company Number: 05H-163-0299042-00

PATIENT

DRUGS (1)
  1. PRECEDEX [Suspect]
     Dates: start: 20050501, end: 20050501

REACTIONS (2)
  - ANAESTHETIC COMPLICATION [None]
  - RESPIRATORY ARREST [None]
